FAERS Safety Report 20429647 (Version 1)
Quarter: 2022Q1

REPORT INFORMATION
  Report Type: Report from Study
  Country: US (occurrence: US)
  Receive Date: 20220204
  Receipt Date: 20220204
  Transmission Date: 20220423
  Serious: Yes (Life-Threatening, Hospitalization)
  Sender: FDA-Public Use
  Company Number: US-SERVIER-S19008784

PATIENT

DRUGS (21)
  1. ONCASPAR [Suspect]
     Active Substance: PEGASPARGASE
     Indication: B precursor type acute leukaemia
     Dosage: 2500 IU/M2 IV ON DAY 6
     Route: 042
     Dates: start: 20190722, end: 20190722
  2. TN UNSPECIFIED [Concomitant]
     Indication: B-cell type acute leukaemia
     Dosage: 6 MG/M2 ON  DAYS 1-25, THEN ON DAYS 26-32
     Route: 048
     Dates: start: 20190716, end: 20190815
  3. TN UNSPECIFIED [Concomitant]
     Indication: B-cell type acute leukaemia
     Dosage: 1.5 MG/M2 IV DAYS 4, 5
     Route: 042
     Dates: start: 20190719, end: 20190809
  4. TN UNSPECIFIED [Concomitant]
     Indication: B-cell type acute leukaemia
     Dosage: 30 MG/M2 IV DAYS 4, 5
     Route: 042
     Dates: start: 20190719, end: 20190720
  5. TN UNSPECIFIED [Concomitant]
     Indication: B-cell type acute leukaemia
     Dosage: 300 MG/M2 IV DAYS 4, 5
     Route: 042
     Dates: start: 20190719, end: 20190720
  6. TN UNSPECIFIED [Concomitant]
     Indication: B-cell type acute leukaemia
     Dosage: 12 MG, ON DAY18
     Route: 037
     Dates: start: 20190802, end: 20190802
  7. TN UNSPECIFIED [Concomitant]
     Indication: B-cell type acute leukaemia
     Dosage: 40 MG ON DAY 18
     Route: 037
     Dates: start: 20190802, end: 20190802
  8. TN UNSPECIFIED [Concomitant]
     Indication: B-cell type acute leukaemia
     Dosage: 15 MG ON DAY 18
     Route: 037
     Dates: start: 20190802, end: 20190802
  9. TN UNSPECIFIED [Concomitant]
     Indication: Product used for unknown indication
     Dosage: UNK
     Route: 065
  10. TN UNSPECIFIED [Concomitant]
     Indication: Product used for unknown indication
     Dosage: UNK
     Route: 065
  11. TN UNSPECIFIED [Concomitant]
     Indication: Product used for unknown indication
     Dosage: UNK
     Route: 065
  12. TN UNSPECIFIED [Concomitant]
     Indication: Product used for unknown indication
     Dosage: UNK
     Route: 065
  13. TN UNSPECIFIED [Concomitant]
     Indication: Product used for unknown indication
     Dosage: UNK
     Route: 065
  14. TN UNSPECIFIED [Concomitant]
     Indication: Product used for unknown indication
     Dosage: UNK
     Route: 065
  15. TN UNSPECIFIED [Concomitant]
     Indication: Product used for unknown indication
     Dosage: UNK
     Route: 065
  16. TN UNSPECIFIED [Concomitant]
     Indication: Product used for unknown indication
     Dosage: UNK
     Route: 065
  17. TN UNSPECIFIED [Concomitant]
     Indication: Product used for unknown indication
     Dosage: UNK
     Route: 065
  18. ACETAMINOPHEN [Concomitant]
     Active Substance: ACETAMINOPHEN
     Indication: Product used for unknown indication
     Dosage: UNK
     Route: 065
  19. TN UNSPECIFIED [Concomitant]
     Indication: Product used for unknown indication
     Dosage: UNK
     Route: 065
  20. TN UNSPECIFIED [Concomitant]
     Indication: Product used for unknown indication
     Route: 065
  21. TN UNSPECIFIED [Concomitant]
     Indication: Product used for unknown indication
     Dosage: UNK
     Route: 065

REACTIONS (3)
  - Sepsis [Recovered/Resolved]
  - Pneumonia [Recovering/Resolving]
  - Febrile neutropenia [Recovering/Resolving]

NARRATIVE: CASE EVENT DATE: 20190815
